FAERS Safety Report 8137985-6 (Version None)
Quarter: 2012Q1

REPORT INFORMATION
  Report Type: 
  Country: None (occurrence: None)
  Receive Date: 20120215
  Receipt Date: 20120213
  Transmission Date: 20120608
  Serious: Yes (Disabling, Other)
  Sender: FDA-Public Use
  Company Number: NO-PFIZER INC-2012037994

PATIENT
  Age: 38 Year
  Sex: Male

DRUGS (1)
  1. VARENICLINE TARTRATE [Suspect]
     Indication: SMOKING CESSATION THERAPY
     Dosage: ACCORDING TO SCHEDULE
     Route: 048
     Dates: start: 20110801, end: 20111101

REACTIONS (7)
  - LOSS OF CONSCIOUSNESS [None]
  - IRRITABILITY [None]
  - DEPRESSION [None]
  - PERSONALITY CHANGE [None]
  - SEXUAL DYSFUNCTION [None]
  - ALCOHOL INTOLERANCE [None]
  - LIBIDO DECREASED [None]
